FAERS Safety Report 13497185 (Version 3)
Quarter: 2017Q3

REPORT INFORMATION
  Report Type: Spontaneous
  Country: MX (occurrence: MX)
  Receive Date: 20170428
  Receipt Date: 20170821
  Transmission Date: 20171127
  Serious: Yes (Hospitalization)
  Sender: FDA-Public Use
  Company Number: MX-PFIZER INC-2017013779

PATIENT
  Age: 67 Year
  Sex: Female

DRUGS (7)
  1. RALOXIFENE. [Suspect]
     Active Substance: RALOXIFENE
     Indication: DEPRESSION
     Dosage: UNK
  2. LEVETIRACETAM. [Suspect]
     Active Substance: LEVETIRACETAM
     Indication: DEPRESSION
     Dosage: 500 MG, 2X/DAY
  3. NIFEDIPINE. [Suspect]
     Active Substance: NIFEDIPINE
     Indication: HYPERTENSION
     Dosage: 20 MG, 3X/DAY
  4. ATORVASTATIN [Concomitant]
     Active Substance: ATORVASTATIN
     Indication: DYSLIPIDAEMIA
     Dosage: 10 MG, DAILY
  5. DESVENLAFAXINE SUCCINATE MONOHYDRATE [Suspect]
     Active Substance: DESVENLAFAXINE SUCCINATE
     Indication: DEPRESSION
     Dosage: 50 MG, DAILY
  6. QUETIAPINE. [Suspect]
     Active Substance: QUETIAPINE
     Indication: DEPRESSION
     Dosage: 300 MG, DAILY
  7. PIRACETAM [Suspect]
     Active Substance: PIRACETAM
     Indication: DEPRESSION
     Dosage: 60 MG, DAILY

REACTIONS (2)
  - Intestinal pseudo-obstruction [Recovered/Resolved]
  - Large intestine perforation [Recovered/Resolved]
